FAERS Safety Report 24570284 (Version 1)
Quarter: 2024Q4

REPORT INFORMATION
  Report Type: Spontaneous
  Country: US (occurrence: None)
  Receive Date: 20241030
  Receipt Date: 20241030
  Transmission Date: 20250114
  Serious: Yes (unspecified)
  Sender: Public
  Company Number: None

PATIENT
  Age: 54 Year
  Sex: Female

DRUGS (1)
  1. VANCOMYCIN [Suspect]
     Active Substance: VANCOMYCIN
     Dosage: IVPB 2,000MG ?PROGRAMMED FOR 114 ML/HR

REACTIONS (6)
  - Peripheral swelling [None]
  - Peripheral swelling [None]
  - Skin discolouration [None]
  - Nonspecific reaction [None]
  - Skin graft [None]
  - Device issue [None]

NARRATIVE: CASE EVENT DATE: 20241021
